FAERS Safety Report 19076734 (Version 1)
Quarter: 2021Q1

REPORT INFORMATION
  Report Type: Spontaneous
  Country: US (occurrence: US)
  Receive Date: 20210331
  Receipt Date: 20210331
  Transmission Date: 20210420
  Serious: Yes (Hospitalization, Other)
  Sender: FDA-Public Use
  Company Number: US-AUROBINDO-AUR-APL-2021-013040

PATIENT
  Age: 30 Year
  Sex: Male

DRUGS (2)
  1. ATOMOXETINE. [Suspect]
     Active Substance: ATOMOXETINE HYDROCHLORIDE
     Indication: PRODUCT USED FOR UNKNOWN INDICATION
     Dosage: 5175 MILLIGRAM
     Route: 065
  2. ATOMOXETINE. [Suspect]
     Active Substance: ATOMOXETINE HYDROCHLORIDE
     Dosage: 60?COUNT 40 MG BOTTLES
     Route: 065

REACTIONS (7)
  - Electrocardiogram QT prolonged [Recovering/Resolving]
  - Sinus tachycardia [Unknown]
  - Vomiting [Unknown]
  - Epilepsy [Unknown]
  - Electrocardiogram QRS complex prolonged [Recovering/Resolving]
  - Psychomotor hyperactivity [Unknown]
  - Overdose [Unknown]
